FAERS Safety Report 17448372 (Version 3)
Quarter: 2020Q2

REPORT INFORMATION
  Report Type: Report from Study
  Country: None (occurrence: NL)
  Receive Date: 20200223
  Receipt Date: 20200426
  Transmission Date: 20200713
  Serious: Yes (Other)
  Sender: FDA-Public Use
  Company Number: NL-ABBVIE-18K-114-2251268-00

PATIENT
  Age: 68 Year
  Sex: Male
  Weight: 80 kg

DRUGS (10)
  1. DUODOPA [Suspect]
     Active Substance: CARBIDOPA\LEVODOPA
     Indication: PARKINSON^S DISEASE
     Dosage: MD: 13, CD: 2.9, ED: 3
     Route: 050
     Dates: start: 20160905
  2. TEMAZEPAM. [Concomitant]
     Active Substance: TEMAZEPAM
     Indication: SLEEP DISORDER THERAPY
  3. CLONAZEPAM. [Concomitant]
     Active Substance: CLONAZEPAM
     Indication: SLEEP DISORDER THERAPY
     Dates: end: 202001
  4. QUETIAPINE. [Concomitant]
     Active Substance: QUETIAPINE
     Indication: PRODUCT USED FOR UNKNOWN INDICATION
  5. MOVICOLON [Concomitant]
     Active Substance: POLYETHYLENE GLYCOL 3350\POTASSIUM CHLORIDE\SODIUM BICARBONATE\SODIUM CHLORIDE
     Indication: ABNORMAL FAECES
  6. DUODOPA [Suspect]
     Active Substance: CARBIDOPA\LEVODOPA
     Route: 050
  7. DUODOPA [Suspect]
     Active Substance: CARBIDOPA\LEVODOPA
     Dosage: MORNING DOSE 13.0 ML; CONTINUOUS DOSE 3.0 ML/HR; EXTRA DOSE 3.0 ML?USE OF PUMP 16 HRS
     Route: 050
  8. MACROGOL [Concomitant]
     Active Substance: POLYETHYLENE GLYCOLS
     Indication: ABNORMAL FAECES
  9. ROPINIROLE. [Concomitant]
     Active Substance: ROPINIROLE
     Indication: PRODUCT USED FOR UNKNOWN INDICATION
  10. LAXANS [Concomitant]
     Indication: ABNORMAL FAECES

REACTIONS (33)
  - Gastric disorder [Not Recovered/Not Resolved]
  - Pollakiuria [Not Recovered/Not Resolved]
  - Hypersomnia [Not Recovered/Not Resolved]
  - Nasopharyngitis [Not Recovered/Not Resolved]
  - Fall [Not Recovered/Not Resolved]
  - Somnolence [Not Recovered/Not Resolved]
  - Gastrointestinal pain [Recovered/Resolved]
  - Abnormal behaviour [Not Recovered/Not Resolved]
  - Asthenopia [Not Recovered/Not Resolved]
  - Insomnia [Not Recovered/Not Resolved]
  - Freezing phenomenon [Not Recovered/Not Resolved]
  - General physical health deterioration [Not Recovered/Not Resolved]
  - Amnesia [Not Recovered/Not Resolved]
  - Therapeutic product effect incomplete [Unknown]
  - Device dislocation [Unknown]
  - Malaise [Recovered/Resolved]
  - Confusional state [Not Recovered/Not Resolved]
  - Hydrocele [Not Recovered/Not Resolved]
  - Fatigue [Not Recovered/Not Resolved]
  - Nausea [Not Recovered/Not Resolved]
  - Abdominal pain upper [Not Recovered/Not Resolved]
  - Hallucination [Recovering/Resolving]
  - Fatigue [Unknown]
  - Prostate cancer [Not Recovered/Not Resolved]
  - Confusional arousal [Not Recovered/Not Resolved]
  - Abnormal dreams [Recovering/Resolving]
  - Urinary incontinence [Not Recovered/Not Resolved]
  - Abdominal pain upper [Recovered/Resolved]
  - On and off phenomenon [Unknown]
  - Disorientation [Not Recovered/Not Resolved]
  - Muscle rigidity [Not Recovered/Not Resolved]
  - Balance disorder [Not Recovered/Not Resolved]
  - Confusional state [Recovered/Resolved]

NARRATIVE: CASE EVENT DATE: 20180129
